FAERS Safety Report 14100388 (Version 4)
Quarter: 2018Q4

REPORT INFORMATION
  Report Type: Spontaneous
  Country: US (occurrence: US)
  Receive Date: 20171017
  Receipt Date: 20181016
  Transmission Date: 20190204
  Serious: Yes (Other)
  Sender: FDA-Public Use
  Company Number: US-ALLERGAN-1758677US

PATIENT
  Age: 75 Year
  Sex: Male

DRUGS (11)
  1. ASPIRIN. [Concomitant]
     Active Substance: ASPIRIN
  2. XTANDI [Suspect]
     Active Substance: ENZALUTAMIDE
     Dosage: 160 MG, QD
     Route: 048
     Dates: start: 201708
  3. XTANDI [Suspect]
     Active Substance: ENZALUTAMIDE
     Dosage: 160 MG, QD
     Route: 048
     Dates: start: 201706, end: 2017
  4. HYDROCODONE/ACETAMINOPHEN [Concomitant]
     Active Substance: ACETAMINOPHEN\HYDROCODONE
  5. LISINOPRIL. [Concomitant]
     Active Substance: LISINOPRIL
  6. XTANDI [Suspect]
     Active Substance: ENZALUTAMIDE
     Indication: PROSTATE CANCER
     Dosage: 40 MG, TID
     Route: 048
     Dates: start: 2017
  7. CARVEDILOL. [Concomitant]
     Active Substance: CARVEDILOL
  8. XTANDI [Suspect]
     Active Substance: ENZALUTAMIDE
     Dosage: UNK
  9. TRIPTORELIN PAMOATE - BP [Suspect]
     Active Substance: TRIPTORELIN PAMOATE
     Indication: BLOOD TESTOSTERONE DECREASED
     Dosage: 3.75 MG, SINGLE, EVERY 3 MONTHS
     Route: 065
     Dates: start: 201708, end: 201708
  10. XTANDI [Suspect]
     Active Substance: ENZALUTAMIDE
     Dosage: 160 MG, QD
     Route: 048
     Dates: start: 20170711, end: 20170712
  11. VITAMIN D [Concomitant]
     Active Substance: CHOLECALCIFEROL

REACTIONS (5)
  - Haematochezia [Recovered/Resolved]
  - Off label use [Unknown]
  - Dizziness [Not Recovered/Not Resolved]
  - Nausea [Recovered/Resolved]
  - Malignant neoplasm progression [Unknown]

NARRATIVE: CASE EVENT DATE: 2017
